FAERS Safety Report 8796324 (Version 1)
Quarter: 2012Q4

REPORT INFORMATION
  Report Type: 
  Country: FI (occurrence: FI)
  Receive Date: 20120919
  Receipt Date: 20120919
  Transmission Date: 20130627
  Serious: Yes (Other)
  Sender: FDA-Public Use
  Company Number: FI-PFIZER INC-2012227934

PATIENT
  Age: 42 Year
  Sex: Female

DRUGS (7)
  1. EFEXOR [Suspect]
     Indication: DEPRESSION
     Dosage: 225 mg daily
     Dates: start: 2007
  2. EFEXOR [Suspect]
     Indication: ANXIETY DISORDER
     Dosage: 150 mg daily
  3. EFEXOR [Suspect]
     Dosage: 225 mg, UNK
  4. EFEXOR [Suspect]
     Dosage: 75 mg, 1x/day
  5. EFEXOR [Suspect]
     Dosage: 37.5 mg, UNK
     Dates: end: 2012
  6. TENOX [Concomitant]
     Dosage: 20 mg, as needed
  7. XANOR [Concomitant]
     Dosage: 1 mg, as needed

REACTIONS (6)
  - Withdrawal syndrome [Unknown]
  - Paraesthesia [Unknown]
  - Asthenia [Unknown]
  - Fatigue [Unknown]
  - Sleep disorder [Unknown]
  - Drug ineffective [Not Recovered/Not Resolved]
